FAERS Safety Report 8965805 (Version 1)
Quarter: 2012Q4

REPORT INFORMATION
  Report Type: Spontaneous
  Country: US (occurrence: None)
  Receive Date: 20121213
  Receipt Date: 20121213
  Transmission Date: 20130627
  Serious: No
  Sender: FDA-Public Use
  Company Number: None

PATIENT
  Age: 73 Year
  Sex: Male

DRUGS (2)
  1. ZELBORAF [Suspect]
     Indication: THYROID NEOPLASM MALIGNANT
     Dosage: 960 mg bid po
  2. ZELBORAF [Suspect]
     Indication: GASTROINTESTINAL NEOPLASM MALIGNANT
     Dosage: 960 mg bid po

REACTIONS (1)
  - Palmar-plantar erythrodysaesthesia syndrome [None]
